FAERS Safety Report 23504888 (Version 1)
Quarter: 2024Q1

REPORT INFORMATION
  Report Type: Spontaneous
  Country: GB (occurrence: GB)
  Receive Date: 20240209
  Receipt Date: 20240209
  Transmission Date: 20240409
  Serious: No
  Sender: FDA-Public Use
  Company Number: None

PATIENT
  Age: 72 Year
  Sex: Female
  Weight: 93 kg

DRUGS (16)
  1. GABAPENTIN [Suspect]
     Active Substance: GABAPENTIN
     Indication: Ill-defined disorder
     Dosage: UNK
     Route: 065
     Dates: start: 20230803
  2. AMLODIPINE [Concomitant]
     Active Substance: AMLODIPINE BESYLATE
     Indication: Ill-defined disorder
     Dosage: 1 DOSAGE FORM, QD, (TAKE ONE TABLET IN THE EVENING)
     Route: 065
     Dates: start: 20201123
  3. AZITHROMYCIN [Concomitant]
     Active Substance: AZITHROMYCIN
     Indication: Ill-defined disorder
     Dosage: 1 DOSAGE FORM (TAKE ONE CAPSULE ON MONDAY, WEDNESDAY, FRIDAY E)
     Route: 065
     Dates: start: 20191126
  4. CANDESARTAN [Concomitant]
     Active Substance: CANDESARTAN
     Indication: Ill-defined disorder
     Dosage: UNK, QD (TAKE ONE IN THE EVENING)
     Route: 065
     Dates: start: 20201123
  5. Codiene phosphate [Concomitant]
     Indication: Ill-defined disorder
     Dosage: UNK, PRN (TAKE ONE OR TWO TABLETS FOUR TIMES A DAY WHEN REQUIRED)
     Route: 065
     Dates: start: 20230803
  6. DOXYCYCLINE [Concomitant]
     Active Substance: DOXYCYCLINE
     Indication: Infection
     Dosage: UNK, QD (TAKE TWO NOW THEN ONE DAILY FOR 7 DAYS TO TREAT INFECTION)
     Route: 065
     Dates: start: 20230524, end: 20230529
  7. ESTRADIOL [Concomitant]
     Active Substance: ESTRADIOL
     Indication: Ill-defined disorder
     Dosage: UNK, 1 DAILY FOR 2W THEN TWICE WEEKLY
     Route: 065
     Dates: start: 20180831, end: 20230803
  8. GABAPENTIN [Concomitant]
     Active Substance: GABAPENTIN
     Indication: Ill-defined disorder
     Dosage: 1 DOSAGE FORM, TID (TAKE ONE CAPSULE THREE TIMES A DAY. IF TOLERATE.)
     Route: 065
     Dates: start: 20230605, end: 20230703
  9. METOCLOPRAMIDE [Concomitant]
     Active Substance: METOCLOPRAMIDE
     Indication: Ill-defined disorder
     Dosage: 1 DOSAGE FORM, BID (TAKE ONE TABLET TWICE EACH DAY)
     Route: 065
     Dates: start: 20190412
  10. MONTELUKAST [Concomitant]
     Active Substance: MONTELUKAST SODIUM
     Indication: Ill-defined disorder
     Dosage: 1 DOSAGE FORM, HS (TAKE ONE TABLET AT NIGHT)
     Route: 065
     Dates: start: 20191126
  11. PANTOPRAZOLE [Concomitant]
     Active Substance: PANTOPRAZOLE
     Indication: Ill-defined disorder
     Dosage: 2 DOSAGE FORM, OD (TAKE TWO TABLETS ONCE A DAY IN PLACE OF 40MG)
     Route: 065
     Dates: start: 20220513
  12. PREDNISOLONE [Concomitant]
     Active Substance: PREDNISOLONE
     Indication: Ill-defined disorder
     Dosage: UNK, OD (EIGHT TO BE TAKEN ONCE DAILY FOR 12 DAYS)
     Route: 065
     Dates: start: 20230524, end: 20230529
  13. FLUTICASONE FUROATE\VILANTEROL TRIFENATATE [Concomitant]
     Active Substance: FLUTICASONE FUROATE\VILANTEROL TRIFENATATE
     Indication: Ill-defined disorder
     Dosage: 1 DOSAGE FORM, QD (INHALE 1 DOSE DAILY)
     Dates: start: 20191126
  14. ALBUTEROL [Concomitant]
     Active Substance: ALBUTEROL
     Indication: Ill-defined disorder
     Dosage: UNK, PRN (INHALE ONE TO TWO DOSES AS NEEDED (PLEASE RETUR..)
     Dates: start: 20230328
  15. SOLIFENACIN [Concomitant]
     Active Substance: SOLIFENACIN
     Indication: Ill-defined disorder
     Dosage: 1 DOSAGE FORM, QD (TAKE ONE TABLET DAILY)
     Route: 065
     Dates: start: 20190412
  16. SPIRIVA [Concomitant]
     Active Substance: TIOTROPIUM BROMIDE MONOHYDRATE
     Indication: Ill-defined disorder
     Dosage: 2 DOSAGE FORM, OD (INHALE TWO PUFFS ONCE A DAY)
     Dates: start: 20220621

REACTIONS (1)
  - Pain [Recovered/Resolved]

NARRATIVE: CASE EVENT DATE: 20230803
